FAERS Safety Report 21321856 (Version 1)
Quarter: 2022Q3

REPORT INFORMATION
  Report Type: Spontaneous
  Country: US (occurrence: None)
  Receive Date: 20220909
  Receipt Date: 20220909
  Transmission Date: 20221027
  Serious: Yes (Death)
  Sender: FDA-Public Use
  Company Number: None

PATIENT
  Sex: Male

DRUGS (11)
  1. PIRFENIDONE [Suspect]
     Active Substance: PIRFENIDONE
     Indication: Idiopathic pulmonary fibrosis
     Dosage: FREQUENCY : 3 TIMES A DAY;?
     Route: 048
     Dates: start: 20220706, end: 202209
  2. ASPIRIN LOW TAB EC [Concomitant]
  3. ATORVASTATIN [Concomitant]
     Active Substance: ATORVASTATIN
  4. CLOPIDOGREL TAB [Concomitant]
  5. ESBRIET [Concomitant]
     Active Substance: PIRFENIDONE
  6. FOSINOPRIL TAB [Concomitant]
  7. METOPROLOL TAR TAB [Concomitant]
  8. NEXIUM CAP [Concomitant]
  9. PREDNISONE [Concomitant]
     Active Substance: PREDNISONE
  10. ROBUTUSSIN MIS DAY/NITE [Concomitant]
  11. VITAMIN D-3 CAP [Concomitant]

REACTIONS (1)
  - Death [None]
